FAERS Safety Report 5133312-7 (Version None)
Quarter: 2006Q4

REPORT INFORMATION
  Report Type: 
  Country: None (occurrence: None)
  Receive Date: 20060831
  Receipt Date: 20060501
  Transmission Date: 20070319
  Serious: No
  Sender: FDA-Public Use
  Company Number: 2006-BP-03795BP

PATIENT
  Age: 84 Year
  Sex: Female
  Weight: 74.84 kg

DRUGS (7)
  1. SPIRIVA [Suspect]
     Indication: CHRONIC OBSTRUCTIVE PULMONARY DISEASE
     Dosage: 18 MCG (18 MCG,1 IN 1 D),IH
     Dates: start: 20060101
  2. TOPROL-XL [Concomitant]
  3. TRIAMTERENE (TRIAMTERENE) [Concomitant]
  4. NEXIUM [Concomitant]
  5. BENADRYL [Concomitant]
  6. ALPRAZOLAM [Concomitant]
  7. IBUPROFEN [Concomitant]

REACTIONS (1)
  - DRUG INEFFECTIVE [None]
